APPROVED DRUG PRODUCT: CENESTIN
Active Ingredient: ESTROGENS, CONJUGATED SYNTHETIC A
Strength: 0.625MG **Federal Register determination that product was not discontinued or withdrawn for safety or effectiveness reasons**
Dosage Form/Route: TABLET;ORAL
Application: N020992 | Product #002
Applicant: ASPEN PHARMA USA INC
Approved: Mar 24, 1999 | RLD: Yes | RS: No | Type: DISCN